FAERS Safety Report 5317081-3 (Version None)
Quarter: 2007Q2

REPORT INFORMATION
  Report Type: 
  Country: None (occurrence: None)
  Receive Date: 20070504
  Receipt Date: 20070430
  Transmission Date: 20071010
  Serious: Yes (Life-Threatening, Hospitalization, Disabling, Other)
  Sender: FDA-Public Use
  Company Number: NLWYE278613DEC04

PATIENT
  Sex: Male
  Weight: 75 kg

DRUGS (12)
  1. SIROLIMUS [Suspect]
     Indication: PROPHYLAXIS AGAINST TRANSPLANT REJECTION
     Dosage: LOADING DOSE OF 15 MG
     Route: 048
     Dates: start: 20041001, end: 20041001
  2. SIROLIMUS [Suspect]
     Dosage: LOADING DOSE OF 12 MG
     Route: 048
     Dates: start: 20041101, end: 20041101
  3. SIROLIMUS [Suspect]
     Route: 048
     Dates: start: 20041102, end: 20041204
  4. SIROLIMUS [Suspect]
     Route: 048
     Dates: start: 20041205, end: 20041209
  5. SIROLIMUS [Suspect]
     Route: 048
     Dates: start: 20041210, end: 20041221
  6. METHYLPREDNISOLONE 16MG TAB [Concomitant]
     Indication: PROPHYLAXIS AGAINST TRANSPLANT REJECTION
     Dosage: 500 MG
     Dates: start: 20041101, end: 20041101
  7. MYCOPHENOLATE MOFETIL [Concomitant]
     Indication: PROPHYLAXIS AGAINST TRANSPLANT REJECTION
     Dates: start: 20041101
  8. DACLIZUMAB [Concomitant]
     Indication: PROPHYLAXIS AGAINST TRANSPLANT REJECTION
     Dosage: 2 DOSAGES OF 1MG/KG TEN DAYS APART
     Dates: start: 20041101
  9. PREDNISOLONE [Suspect]
     Indication: PROPHYLAXIS AGAINST TRANSPLANT REJECTION
     Dosage: 120 MG TAPERED TO 30 MG BY DAY 8
     Dates: start: 20041101, end: 20041101
  10. PREDNISOLONE [Suspect]
     Dosage: 27.5 MG BY DAY 21
     Dates: start: 20041101, end: 20041101
  11. PREDNISOLONE [Suspect]
     Dosage: 25 MG BY DAY 30
     Dates: start: 20041101, end: 20041101
  12. PREDNISOLONE [Suspect]
     Dosage: 25 MG TAPERED BY 2.5 MG EACH MONTH TO 7.5 MG DAILY
     Dates: start: 20041201, end: 20050601

REACTIONS (8)
  - HYPERGLYCAEMIA [None]
  - IMPAIRED HEALING [None]
  - INFERIOR VENA CAVAL OCCLUSION [None]
  - PROTEINURIA [None]
  - PULMONARY EMBOLISM [None]
  - REMOVAL OF RENAL TRANSPLANT [None]
  - RENAL HAEMORRHAGE [None]
  - WOUND INFECTION [None]
